FAERS Safety Report 13697638 (Version 1)
Quarter: 2017Q2

REPORT INFORMATION
  Report Type: Spontaneous
  Country: SE (occurrence: SE)
  Receive Date: 20170628
  Receipt Date: 20170628
  Transmission Date: 20170830
  Serious: Yes (Other)
  Sender: FDA-Public Use
  Company Number: SE-JNJFOC-20170622070

PATIENT
  Age: 4 Month
  Sex: Male

DRUGS (3)
  1. AZATHIOPRINE. [Suspect]
     Active Substance: AZATHIOPRINE
     Indication: INFLAMMATORY BOWEL DISEASE
     Route: 064
  2. REMICADE [Suspect]
     Active Substance: INFLIXIMAB
     Indication: INFLAMMATORY BOWEL DISEASE
     Route: 064
     Dates: end: 201607
  3. PENTASA [Concomitant]
     Active Substance: MESALAMINE

REACTIONS (2)
  - Foetal exposure during pregnancy [Recovered/Resolved]
  - Craniotabes [Recovered/Resolved]

NARRATIVE: CASE EVENT DATE: 2016
